FAERS Safety Report 9045604 (Version 1)
Quarter: 2013Q1

REPORT INFORMATION
  Report Type: Report from Study
  Country: US (occurrence: US)
  Receive Date: 20130131
  Receipt Date: 20130131
  Transmission Date: 20140127
  Serious: No
  Sender: FDA-Public Use
  Company Number: US-ABBOTT-12P-163-1011130-00

PATIENT
  Age: 48 Year
  Sex: Female

DRUGS (14)
  1. HUMIRA [Suspect]
     Indication: PSORIASIS
     Dates: start: 20121014
  2. NOVOLOG MIX [Concomitant]
     Indication: DIABETES MELLITUS
     Dosage: IN THE MORNING AND EVENING
  3. NOVOLOG MIX [Concomitant]
     Dosage: AT LUNCH
  4. LEVEMIR INSULIN [Concomitant]
     Indication: DIABETES MELLITUS
     Dosage: MORNING AND EVENING
  5. LEVOTHYROXINE [Concomitant]
     Indication: HYPOTHYROIDISM
     Dosage: 25 MG DAILY
     Route: 048
  6. METFORMIN [Concomitant]
     Indication: DIABETES MELLITUS
     Route: 048
  7. LISINOPRIL [Concomitant]
     Indication: RENAL LITHIASIS PROPHYLAXIS
     Dosage: 20 MG DAILY
     Route: 048
  8. LISINOPRIL [Concomitant]
     Indication: HYPERTENSION
  9. MULTIVITAMINS [Concomitant]
     Indication: VITAMIN SUPPLEMENTATION
     Dosage: DAILY
     Route: 048
  10. BABY ASPIRIN [Concomitant]
     Indication: FAMILIAL RISK FACTOR
     Dosage: 81 MG DAILY
     Route: 048
  11. PREMARIN [Concomitant]
     Indication: HORMONE REPLACEMENT THERAPY
     Dosage: 0.9 MG DAILY
     Route: 048
  12. ALCLOMETASONE [Concomitant]
     Indication: PRODUCT USED FOR UNKNOWN INDICATION
     Dosage: APPLY TO FACE AND EARS
  13. CLOBETASOL PROPIONATE [Concomitant]
     Indication: PRODUCT USED FOR UNKNOWN INDICATION
     Dosage: APPLIED TO REST OF BODY
  14. HALOG [Concomitant]
     Indication: PRODUCT USED FOR UNKNOWN INDICATION
     Dosage: APPLIED ALL OVER

REACTIONS (4)
  - Inappropriate schedule of drug administration [Unknown]
  - Productive cough [Not Recovered/Not Resolved]
  - Oropharyngeal pain [Not Recovered/Not Resolved]
  - Bronchitis [Not Recovered/Not Resolved]
